FAERS Safety Report 6612126-2 (Version None)
Quarter: 2010Q1

REPORT INFORMATION
  Report Type: 
  Country: None (occurrence: None)
  Receive Date: 20100219
  Receipt Date: 20090128
  Transmission Date: 20100710
  Serious: Yes (Hospitalization)
  Sender: FDA-Public Use
  Company Number: 611175

PATIENT
  Age: 46 Year
  Sex: Female

DRUGS (7)
  1. KLONOPIN [Suspect]
     Indication: ANXIETY
     Dates: start: 20080101
  2. FENTANYL-100 [Concomitant]
  3. EFFEXOR [Concomitant]
  4. GABAPENTIN [Concomitant]
  5. PROVIGIL [Concomitant]
  6. RITALIN [Concomitant]
  7. AMBIEN [Concomitant]

REACTIONS (5)
  - ANXIETY [None]
  - MENTAL DISORDER [None]
  - MUSCLE SPASMS [None]
  - TREMOR [None]
  - WITHDRAWAL SYNDROME [None]
